FAERS Safety Report 5668737-4 (Version None)
Quarter: 2008Q1

REPORT INFORMATION
  Report Type: 
  Country: None (occurrence: None)
  Receive Date: 20080312
  Receipt Date: 20080312
  Transmission Date: 20080703
  Serious: Yes (Hospitalization)
  Sender: FDA-Public Use
  Company Number: None

PATIENT
  Sex: Male
  Weight: 54.5 kg

DRUGS (1)
  1. CISPLATIN [Suspect]
     Dosage: 180 MG
     Dates: start: 20080128, end: 20080128

REACTIONS (6)
  - DEHYDRATION [None]
  - DEPRESSION [None]
  - NAUSEA [None]
  - ORAL INTAKE REDUCED [None]
  - REFUSAL OF TREATMENT BY PATIENT [None]
  - VOMITING [None]
